FAERS Safety Report 6797623-1 (Version None)
Quarter: 2010Q2

REPORT INFORMATION
  Report Type: 
  Country: None (occurrence: None)
  Receive Date: 20100623
  Receipt Date: 20100610
  Transmission Date: 20101027
  Serious: Yes (Other)
  Sender: FDA-Public Use
  Company Number: DSA_43296-2010

PATIENT
  Age: 28 Year
  Sex: Female

DRUGS (4)
  1. WELLBUTRIN XL [Suspect]
     Indication: DRUG USE FOR UNKNOWN INDICATION
     Dosage: DF ORAL
     Route: 048
  2. CIPRALEX (CIPRALEX) (NOT SPECIFIED) [Suspect]
     Indication: DRUG USE FOR UNKNOWN INDICATION
     Dosage: DF, ORAL, (20 MG QD ORAL)
     Route: 048
  3. CORTICOSTEROIDS [Concomitant]
  4. ORTHO TRI-CYCLEN [Concomitant]

REACTIONS (8)
  - AGITATION [None]
  - ANGER [None]
  - ANXIETY [None]
  - FATIGUE [None]
  - FEELINGS OF WORTHLESSNESS [None]
  - MOOD SWINGS [None]
  - OBSESSIVE THOUGHTS [None]
  - POOR QUALITY SLEEP [None]
